FAERS Safety Report 4720179-1 (Version None)
Quarter: 2005Q3

REPORT INFORMATION
  Report Type: 
  Country: None (occurrence: None)
  Receive Date: 20050721
  Receipt Date: 20050712
  Transmission Date: 20060218
  Serious: Yes (Hospitalization)
  Sender: FDA-Public Use
  Company Number: CZ-BRISTOL-MYERS SQUIBB COMPANY-13038492

PATIENT
  Age: 25 Year
  Sex: Female

DRUGS (1)
  1. CEFZIL [Suspect]
     Indication: SINUSITIS
     Route: 048

REACTIONS (1)
  - RASH [None]
